FAERS Safety Report 19160631 (Version 1)
Quarter: 2021Q2

REPORT INFORMATION
  Report Type: Spontaneous
  Country: IL (occurrence: IL)
  Receive Date: 20210421
  Receipt Date: 20210421
  Transmission Date: 20210717
  Serious: Yes (Other)
  Sender: FDA-Public Use
  Company Number: IL-APOTEX-2021AP009901

PATIENT
  Age: 40 Year
  Sex: Female

DRUGS (1)
  1. PAROXETINE HYDROCHLORIDE. [Suspect]
     Active Substance: PAROXETINE HYDROCHLORIDE
     Indication: OBSESSIVE-COMPULSIVE DISORDER
     Dosage: 40 MG
     Route: 065

REACTIONS (2)
  - Bipolar II disorder [Unknown]
  - Drug ineffective [Unknown]
